FAERS Safety Report 14161087 (Version 1)
Quarter: 2017Q4

REPORT INFORMATION
  Report Type: Spontaneous
  Country: US (occurrence: US)
  Receive Date: 20171104
  Receipt Date: 20171104
  Transmission Date: 20180321
  Serious: Yes (Life-Threatening, Disabling)
  Sender: FDA-Public Use
  Company Number: None

PATIENT
  Age: 40 Year
  Sex: Female
  Weight: 81 kg

DRUGS (8)
  1. VITAMIN C [Concomitant]
     Active Substance: ASCORBIC ACID
  2. CINNAMON. [Concomitant]
     Active Substance: CINNAMON
  3. VITAMIN D [Concomitant]
     Active Substance: CHOLECALCIFEROL
  4. STRATTERA [Suspect]
     Active Substance: ATOMOXETINE HYDROCHLORIDE
     Indication: ATTENTION DEFICIT/HYPERACTIVITY DISORDER
     Route: 048
     Dates: start: 20161230, end: 20170803
  5. GLIMEPIRIDE. [Concomitant]
     Active Substance: GLIMEPIRIDE
  6. SYNTHROID [Concomitant]
     Active Substance: LEVOTHYROXINE SODIUM
  7. TURMERIC [Concomitant]
     Active Substance: HERBALS\TURMERIC
  8. METFORMIN [Concomitant]
     Active Substance: METFORMIN HYDROCHLORIDE

REACTIONS (13)
  - Anger [None]
  - Muscle spasms [None]
  - Screaming [None]
  - Hyperacusis [None]
  - Blood glucose increased [None]
  - Apathy [None]
  - Product label issue [None]
  - Crying [None]
  - Vision blurred [None]
  - Sensory disturbance [None]
  - Agitation [None]
  - Lethargy [None]
  - Glycosylated haemoglobin increased [None]

NARRATIVE: CASE EVENT DATE: 20170701
